FAERS Safety Report 5969291-X (Version None)
Quarter: 2008Q4

REPORT INFORMATION
  Report Type: 
  Country: None (occurrence: None)
  Receive Date: 20081126
  Receipt Date: 20081118
  Transmission Date: 20090506
  Serious: Yes (Other)
  Sender: FDA-Public Use
  Company Number: TR-B.I. PHARMACEUTICALS,INC./RIDGEFIELD-2008-DE-07024GD

PATIENT

DRUGS (2)
  1. ATROVENT [Suspect]
     Indication: BRONCHIOLITIS
     Dosage: 250 MCG/2 ML PLUS 3 ML SALINE SOLUTION EVERY 6 H
     Route: 055
  2. OXYGEN [Concomitant]
     Indication: BRONCHIOLITIS
     Dosage: 6-7 L/MIN
     Route: 055

REACTIONS (1)
  - CONDITION AGGRAVATED [None]
